FAERS Safety Report 6315080-6 (Version None)
Quarter: 2009Q3

REPORT INFORMATION
  Report Type: 
  Country: None (occurrence: None)
  Receive Date: 20090817
  Receipt Date: 20090806
  Transmission Date: 20100115
  Serious: Yes (Congenital Anomaly)
  Sender: FDA-Public Use
  Company Number: GXKR2009CH09077

PATIENT
  Sex: Female
  Weight: 3.2 kg

DRUGS (7)
  1. OMEPRAZOLE [Suspect]
     Dosage: TRANSPLACENTAL
     Route: 064
     Dates: start: 20080508, end: 20080517
  2. FLAGYL [Suspect]
     Dosage: TRANSPLACENTAL
     Route: 064
     Dates: start: 20080508, end: 20080517
  3. CLARITHROMYCIN [Suspect]
     Dosage: TRANSPLACENTAL
     Route: 064
     Dates: start: 20080508, end: 20080517
  4. NOVOLOG [Suspect]
     Dosage: TRANSPLACENTAL
     Route: 064
     Dates: start: 20080601, end: 20081014
  5. INSULATARD NPH HUMAN [Suspect]
     Dosage: TRANSPLACENTAL
     Route: 064
     Dates: start: 20080601, end: 20081014
  6. ACETAMINOPHEN [Concomitant]
  7. MORPHINE [Concomitant]

REACTIONS (9)
  - BREECH PRESENTATION [None]
  - CAESAREAN SECTION [None]
  - HYPERBILIRUBINAEMIA [None]
  - JAUNDICE [None]
  - MACROCEPHALY [None]
  - MACROSOMIA [None]
  - MATERNAL DRUGS AFFECTING FOETUS [None]
  - PREMATURE BABY [None]
  - PREMATURE RUPTURE OF MEMBRANES [None]
